FAERS Safety Report 7302000-0 (Version None)
Quarter: 2011Q1

REPORT INFORMATION
  Report Type: 
  Country: None (occurrence: None)
  Receive Date: 20110218
  Receipt Date: 20110215
  Transmission Date: 20110831
  Serious: Yes (Hospitalization)
  Sender: FDA-Public Use
  Company Number: GB-AMGEN-GBRNI2010004392

PATIENT
  Age: 49 Year
  Sex: Male

DRUGS (13)
  1. PANITUMUMAB [Suspect]
     Indication: OESOPHAGEAL CARCINOMA
     Dosage: UNK
     Dates: start: 20101021
  2. METOCLOPRAMIDE HCL [Concomitant]
     Indication: NAUSEA
     Dosage: 10 MG, TID
     Dates: start: 20101004
  3. DEXAMETHASONE [Concomitant]
     Dosage: 4 MG, QD
     Dates: start: 20101018
  4. ELLENCE [Suspect]
     Dosage: UNK
     Dates: start: 20101021
  5. GAVISCON                           /00237601/ [Concomitant]
     Indication: GASTROOESOPHAGEAL REFLUX DISEASE
     Dosage: 5 ML, PRN
     Dates: start: 20101015
  6. ZOPLICONE [Concomitant]
     Dosage: UNK UNK, PRN
     Dates: start: 20101008
  7. OXALIPLATIN [Suspect]
     Dosage: UNK
     Dates: start: 20101021
  8. XELODA [Suspect]
     Dosage: UNK
     Dates: start: 20101021, end: 20101102
  9. METOCLOPRAMIDE HCL [Concomitant]
     Indication: VOMITING
  10. LANSOPRAZOLE [Concomitant]
     Indication: GASTROOESOPHAGEAL REFLUX DISEASE
     Dosage: 30 MG, QD
     Dates: start: 20101004
  11. MOVICOL                            /01053601/ [Concomitant]
     Indication: CONSTIPATION
     Dosage: UNK UNK, PRN
     Dates: start: 20101008
  12. INFUMORPH [Concomitant]
     Indication: PAIN
     Dosage: 30 MG, BID
     Dates: start: 20101013
  13. ORAMORPH SR [Concomitant]
     Indication: PAIN
     Dosage: 10 MG, PRN
     Dates: start: 20101007

REACTIONS (1)
  - FEBRILE NEUTROPENIA [None]
